FAERS Safety Report 10302433 (Version 2)
Quarter: 2014Q3

REPORT INFORMATION
  Report Type: Spontaneous
  Country: DE (occurrence: DE)
  Receive Date: 20140714
  Receipt Date: 20140725
  Transmission Date: 20150326
  Serious: Yes (Other)
  Sender: FDA-Public Use
  Company Number: DE-JNJFOC-20140707995

PATIENT
  Age: 75 Year
  Sex: Male
  Weight: 72.11 kg

DRUGS (3)
  1. XARELTO [Suspect]
     Active Substance: RIVAROXABAN
     Indication: CEREBROVASCULAR ACCIDENT PROPHYLAXIS
     Route: 048
     Dates: start: 201308
  2. ATORVASTATIN [Concomitant]
     Active Substance: ATORVASTATIN
     Indication: ROUTINE HEALTH MAINTENANCE
     Dosage: 10 UNIT UNSPECIFIED
     Route: 065
  3. XARELTO [Suspect]
     Active Substance: RIVAROXABAN
     Indication: ATRIAL FIBRILLATION
     Route: 048
     Dates: start: 201308

REACTIONS (4)
  - Venous stenosis [Unknown]
  - Cardiac pacemaker insertion [Unknown]
  - Periodontitis [Unknown]
  - Gingival inflammation [Unknown]

NARRATIVE: CASE EVENT DATE: 201404
